FAERS Safety Report 7617502-7 (Version None)
Quarter: 2011Q3

REPORT INFORMATION
  Report Type: 
  Country: None (occurrence: None)
  Receive Date: 20110718
  Receipt Date: 20110715
  Transmission Date: 20111222
  Serious: Yes (Other)
  Sender: FDA-Public Use
  Company Number: BE-BRISTOL-MYERS SQUIBB COMPANY-15904980

PATIENT

DRUGS (1)
  1. ARIPIPRAZOLE [Suspect]
     Dosage: 1DF=1/2 VIAL
     Route: 030

REACTIONS (2)
  - AMMONIA INCREASED [None]
  - COMA [None]
